FAERS Safety Report 9038931 (Version 1)
Quarter: 2013Q1

REPORT INFORMATION
  Report Type: Report from Study
  Country: US (occurrence: US)
  Receive Date: 20130129
  Receipt Date: 20130129
  Transmission Date: 20140127
  Serious: No
  Sender: FDA-Public Use
  Company Number: US-ABBOTT-12P-163-0931443-00

PATIENT
  Sex: Male
  Weight: 83.99 kg

DRUGS (5)
  1. HUMIRA 40 MG/0.8 ML PEN [Suspect]
     Indication: PSORIASIS
     Route: 058
     Dates: start: 2010
  2. XANAX [Concomitant]
     Indication: ANXIETY
  3. DILTIAZEM ER [Concomitant]
     Indication: HYPERTENSION
  4. ZETIA [Concomitant]
     Indication: BLOOD CHOLESTEROL INCREASED
  5. MULTIVITAMIN [Concomitant]
     Indication: VITAMIN SUPPLEMENTATION

REACTIONS (3)
  - Drug ineffective [Not Recovered/Not Resolved]
  - Psoriasis [Not Recovered/Not Resolved]
  - Psoriasis [Not Recovered/Not Resolved]
